FAERS Safety Report 4974088-3 (Version None)
Quarter: 2006Q2

REPORT INFORMATION
  Report Type: 
  Country: None (occurrence: None)
  Receive Date: 20060417
  Receipt Date: 20060329
  Transmission Date: 20061013
  Serious: Yes (Other)
  Sender: FDA-Public Use
  Company Number: CA-ROCHE-442539

PATIENT
  Sex: Female

DRUGS (3)
  1. ACCUTANE [Suspect]
     Indication: ACNE
     Dosage: CAPSULE STRENGTH REPORTED AS: 10 MG AND 40 MG.
     Route: 048
     Dates: start: 20060115, end: 20060315
  2. ACCUTANE [Suspect]
     Route: 048
     Dates: start: 20040615, end: 20040615
  3. BIRTH CONTROL PILLS [Concomitant]

REACTIONS (2)
  - NO ADVERSE EFFECT [None]
  - PREGNANCY [None]
